FAERS Safety Report 7190065-9 (Version None)
Quarter: 2010Q4

REPORT INFORMATION
  Report Type: 
  Country: None (occurrence: None)
  Receive Date: 20101223
  Receipt Date: 20101208
  Transmission Date: 20110411
  Serious: Yes (Life-Threatening, Hospitalization)
  Sender: FDA-Public Use
  Company Number: ZA-JNJFOC-20101207504

PATIENT
  Age: 30 Month
  Sex: Male

DRUGS (2)
  1. VERMOX [Suspect]
     Indication: INFECTION PROPHYLAXIS
     Route: 048
  2. ATARAX [Suspect]
     Indication: ILL-DEFINED DISORDER
     Dosage: BEFORE BED TIME
     Route: 048

REACTIONS (12)
  - CONVULSION [None]
  - CYANOSIS CENTRAL [None]
  - ENCEPHALOPATHY [None]
  - HYPERREFLEXIA [None]
  - HYPONATRAEMIA [None]
  - HYPOVENTILATION [None]
  - ILEUS [None]
  - LIVER INJURY [None]
  - PANCREATITIS [None]
  - POISONING [None]
  - POOR PERIPHERAL CIRCULATION [None]
  - SKIN DISCOLOURATION [None]
